FAERS Safety Report 13780929 (Version 1)
Quarter: 2017Q3

REPORT INFORMATION
  Report Type: Spontaneous
  Country: US (occurrence: US)
  Receive Date: 20170722
  Receipt Date: 20170722
  Transmission Date: 20171127
  Serious: Yes (Other)
  Sender: FDA-Public Use
  Company Number: None

PATIENT
  Age: 63 Year
  Sex: Female
  Weight: 66.15 kg

DRUGS (5)
  1. AZITHROMYCIN 250 MG [Suspect]
     Active Substance: AZITHROMYCIN ANHYDROUS
     Indication: OROPHARYNGEAL PAIN
     Dosage: ?          OTHER STRENGTH:MG;QUANTITY:5 TABLET(S);?ORAL
     Route: 048
     Dates: start: 20170718, end: 20170722
  2. AZITHROMYCIN 250 MG [Suspect]
     Active Substance: AZITHROMYCIN ANHYDROUS
     Indication: EAR INFECTION
     Dosage: ?          OTHER STRENGTH:MG;QUANTITY:5 TABLET(S);?ORAL
     Route: 048
     Dates: start: 20170718, end: 20170722
  3. LISINOPRIL 10 MG [Concomitant]
     Active Substance: LISINOPRIL
  4. BIOTIN 5000 [Concomitant]
  5. VITAMIN D3 [Concomitant]
     Active Substance: CHOLECALCIFEROL

REACTIONS (2)
  - Ageusia [None]
  - Anosmia [None]

NARRATIVE: CASE EVENT DATE: 20170721
